FAERS Safety Report 16752273 (Version 4)
Quarter: 2019Q3

REPORT INFORMATION
  Report Type: Spontaneous
  Country: CA (occurrence: CA)
  Receive Date: 20190828
  Receipt Date: 20190917
  Transmission Date: 20191005
  Serious: Yes (Hospitalization)
  Sender: FDA-Public Use
  Company Number: CA-GLAXOSMITHKLINE-CA2019AMR153939

PATIENT
  Sex: Female

DRUGS (1)
  1. BENLYSTA [Suspect]
     Active Substance: BELIMUMAB
     Indication: SYSTEMIC LUPUS ERYTHEMATOSUS
     Dosage: 1200 MG, UNK

REACTIONS (5)
  - Fatigue [Unknown]
  - Catheter site hypersensitivity [Unknown]
  - Blood potassium decreased [Unknown]
  - Product dose omission [Unknown]
  - Inappropriate schedule of product administration [Unknown]
